FAERS Safety Report 21081455 (Version 1)
Quarter: 2022Q3

REPORT INFORMATION
  Report Type: Spontaneous
  Country: CN (occurrence: CN)
  Receive Date: 20220714
  Receipt Date: 20220714
  Transmission Date: 20221026
  Serious: Yes (Other)
  Sender: FDA-Public Use
  Company Number: None

PATIENT
  Age: 48 Year
  Sex: Female
  Weight: 57.5 kg

DRUGS (8)
  1. CYCLOPHOSPHAMIDE [Suspect]
     Active Substance: CYCLOPHOSPHAMIDE
     Indication: Breast cancer female
     Dosage: QD, FIRST AND SECOND CHEMOTHERAPY);CYCLOPHOSPHAMIDE FOR INJECTION + NS
     Route: 042
  2. CYCLOPHOSPHAMIDE [Suspect]
     Active Substance: CYCLOPHOSPHAMIDE
     Dosage: 900 MG, QD, THIRD CHEMOTHERAPY, CYCLOPHOSPHAMIDE (900 MG) + NS (45ML)
     Route: 042
     Dates: start: 20220425, end: 20220425
  3. SODIUM CHLORIDE [Suspect]
     Active Substance: SODIUM CHLORIDE
     Indication: Medication dilution
     Dosage: QD, FIRST AND SECOND CHEMOTHERAPY; CYCLOPHOSPHAMIDE + NS
     Route: 042
  4. SODIUM CHLORIDE [Suspect]
     Active Substance: SODIUM CHLORIDE
     Dosage: 45 ML, QD, THIRD CHEMOTHERAPY; CYCLOPHOSPHAMIDE (900 MG) + NS (45ML)
     Route: 042
     Dates: start: 20220425, end: 20220425
  5. SODIUM CHLORIDE [Suspect]
     Active Substance: SODIUM CHLORIDE
     Dosage: QD, FIRST AND SECOND CHEMOTHERAPY; EPIRUBICIN HYDROCHLORIDE + NS
     Route: 041
  6. SODIUM CHLORIDE [Suspect]
     Active Substance: SODIUM CHLORIDE
     Dosage: 100 ML, QD, THIRD CHEMOTHERAPY; EPIRUBICIN HYDROCHLORIDE (130 MG) + NS (100ML)
     Route: 041
     Dates: start: 20220425, end: 20220425
  7. EPIRUBICIN [Suspect]
     Active Substance: EPIRUBICIN
     Indication: Breast cancer female
     Dosage: QD, FIRST AND SECOND CHEMOTHERAPY; EPIRUBICIN HYDROCHLORIDE + NS
     Route: 041
  8. EPIRUBICIN [Suspect]
     Active Substance: EPIRUBICIN
     Dosage: 130 MG, QD, THIRD CHEMOTHERAPY; EPIRUBICIN HYDROCHLORIDE (130 MG) + NS (100ML)
     Route: 041
     Dates: start: 20220425, end: 20220425

REACTIONS (2)
  - White blood cell count decreased [Recovered/Resolved]
  - Agranulocytosis [Recovered/Resolved]

NARRATIVE: CASE EVENT DATE: 20220510
